FAERS Safety Report 16079718 (Version 1)
Quarter: 2019Q1

REPORT INFORMATION
  Report Type: Spontaneous
  Country: US (occurrence: US)
  Receive Date: 20190315
  Receipt Date: 20190315
  Transmission Date: 20190418
  Serious: Yes (Other)
  Sender: FDA-Public Use
  Company Number: US-ALLERGAN-1910844US

PATIENT
  Sex: Female

DRUGS (3)
  1. CRESTOR [Concomitant]
     Active Substance: ROSUVASTATIN CALCIUM
     Indication: PRODUCT USED FOR UNKNOWN INDICATION
     Dosage: UNK
     Route: 065
  2. SYNTHROID [Concomitant]
     Active Substance: LEVOTHYROXINE SODIUM
     Indication: PRODUCT USED FOR UNKNOWN INDICATION
     Dosage: UNK
     Route: 065
  3. ESTRACE [Suspect]
     Active Substance: ESTRADIOL
     Indication: VAGINAL DISORDER
     Dosage: 1 G, TWICE WEEKLY
     Route: 067
     Dates: start: 2014

REACTIONS (7)
  - Vulvovaginal dryness [Unknown]
  - Urinary tract infection [Recovered/Resolved]
  - Product quality issue [Unknown]
  - Vaginal infection [Recovered/Resolved]
  - Eye pruritus [Unknown]
  - Wrong technique in product usage process [Unknown]
  - Infection [Unknown]

NARRATIVE: CASE EVENT DATE: 2016
